FAERS Safety Report 21451220 (Version 1)
Quarter: 2022Q4

REPORT INFORMATION
  Report Type: Spontaneous
  Country: PH (occurrence: PH)
  Receive Date: 20221013
  Receipt Date: 20221013
  Transmission Date: 20230113
  Serious: Yes (Other)
  Sender: FDA-Public Use
  Company Number: PH-NOVARTISPH-NVSC2022PH229336

PATIENT

DRUGS (1)
  1. TASIGNA [Suspect]
     Active Substance: NILOTINIB
     Indication: Product used for unknown indication
     Dosage: 150 MG, BID (2 CAPSULES)
     Route: 065
     Dates: start: 20220203, end: 20220604

REACTIONS (1)
  - Myelodysplastic syndrome [Unknown]
